FAERS Safety Report 16342201 (Version 1)
Quarter: 2019Q2

REPORT INFORMATION
  Report Type: Report from Study
  Country: US (occurrence: US)
  Receive Date: 20190522
  Receipt Date: 20190522
  Transmission Date: 20190711
  Serious: Yes (Hospitalization)
  Sender: FDA-Public Use
  Company Number: US-BAYER-2019-097568

PATIENT
  Age: 69 Year
  Sex: Female
  Weight: 70.11 kg

DRUGS (1)
  1. STIVARGA [Suspect]
     Active Substance: REGORAFENIB
     Dosage: 120 MG, QD
     Route: 048

REACTIONS (3)
  - Off label use [None]
  - Decreased appetite [None]
  - Dehydration [Not Recovered/Not Resolved]
